FAERS Safety Report 14033635 (Version 5)
Quarter: 2018Q4

REPORT INFORMATION
  Report Type: Spontaneous
  Country: FR (occurrence: FR)
  Receive Date: 20171003
  Receipt Date: 20181128
  Transmission Date: 20190204
  Serious: Yes (Other)
  Sender: FDA-Public Use
  Company Number: FR-MERCK KGAA-2028581

PATIENT
  Age: 70 Year
  Sex: Male
  Weight: 78 kg

DRUGS (6)
  1. VELMETIA [Concomitant]
     Active Substance: METFORMIN\SITAGLIPTIN
  2. EUTHYROX [Suspect]
     Active Substance: LEVOTHYROXINE SODIUM
     Route: 048
     Dates: start: 201706, end: 201808
  3. EUTHYROX [Suspect]
     Active Substance: LEVOTHYROXINE SODIUM
     Indication: POST PROCEDURAL HYPOTHYROIDISM
     Route: 048
     Dates: start: 20170415
  4. EXFORGE [Concomitant]
     Active Substance: AMLODIPINE BESYLATE\VALSARTAN
  5. INDAPAMIDE BIOGARAN [Concomitant]
     Active Substance: INDAPAMIDE
  6. MODAMIDE [Concomitant]
     Active Substance: AMILORIDE HYDROCHLORIDE

REACTIONS (13)
  - Vertigo [Recovering/Resolving]
  - Irritability [Recovering/Resolving]
  - Mood swings [None]
  - Fatigue [Not Recovered/Not Resolved]
  - Headache [Recovering/Resolving]
  - Product formulation issue [Not Recovered/Not Resolved]
  - Social avoidant behaviour [Unknown]
  - Blood thyroid stimulating hormone decreased [Not Recovered/Not Resolved]
  - Asthenia [Recovering/Resolving]
  - Decreased activity [Unknown]
  - Anxiety [Unknown]
  - Insomnia [Recovering/Resolving]
  - Loss of personal independence in daily activities [Unknown]

NARRATIVE: CASE EVENT DATE: 2017
